FAERS Safety Report 7433423-7 (Version None)
Quarter: 2011Q2

REPORT INFORMATION
  Report Type: 
  Country: None (occurrence: None)
  Receive Date: 20110422
  Receipt Date: 20110419
  Transmission Date: 20111010
  Serious: Yes (Hospitalization)
  Sender: FDA-Public Use
  Company Number: US-ALLERGAN-1105562US

PATIENT
  Age: 40 Year
  Sex: Female

DRUGS (4)
  1. BOTOX [Suspect]
     Indication: BACK PAIN
     Dosage: 100 UNITS, SINGLE
     Route: 030
     Dates: start: 20101001, end: 20101001
  2. CORGARD [Concomitant]
     Indication: HEADACHE
  3. SYNTHROID [Concomitant]
     Indication: THYROID DISORDER
  4. RELPAX [Concomitant]
     Indication: HEADACHE
     Dosage: UNK

REACTIONS (6)
  - DISTURBANCE IN ATTENTION [None]
  - HYPERAESTHESIA [None]
  - ANXIETY [None]
  - INFLUENZA LIKE ILLNESS [None]
  - FEELING HOT [None]
  - ASTHENIA [None]
